FAERS Safety Report 22278206 (Version 1)
Quarter: 2023Q2

REPORT INFORMATION
  Report Type: Spontaneous
  Country: US (occurrence: US)
  Receive Date: 20230503
  Receipt Date: 20230503
  Transmission Date: 20230721
  Serious: Yes (Death, Hospitalization, Other)
  Sender: FDA-Public Use
  Company Number: US-AMGEN-USASP2023072989

PATIENT

DRUGS (1)
  1. FILGRASTIM [Suspect]
     Active Substance: FILGRASTIM
     Indication: Prophylaxis
     Dosage: UNK
     Route: 065

REACTIONS (16)
  - Plasma cell myeloma [Fatal]
  - Bacterial infection [Unknown]
  - Neutropenia [Unknown]
  - Febrile neutropenia [Unknown]
  - Pneumonia [Unknown]
  - Cellulitis [Unknown]
  - Diverticulitis [Unknown]
  - Osteomyelitis [Unknown]
  - Prostatitis [Unknown]
  - Corynebacterium infection [Unknown]
  - Staphylococcal bacteraemia [Unknown]
  - Pneumonia pneumococcal [Unknown]
  - Cellulitis staphylococcal [Unknown]
  - Klebsiella infection [Unknown]
  - Escherichia infection [Unknown]
  - Urinary tract infection [Unknown]
